FAERS Safety Report 9850499 (Version 4)
Quarter: 2014Q1

REPORT INFORMATION
  Report Type: Spontaneous
  Country: DE (occurrence: DE)
  Receive Date: 20140128
  Receipt Date: 20140310
  Transmission Date: 20141002
  Serious: Yes (Hospitalization)
  Sender: FDA-Public Use
  Company Number: DE-JNJFOC-20131212257

PATIENT
  Sex: Male

DRUGS (12)
  1. PALEXIA RETARD [Suspect]
     Indication: LIMB INJURY
     Route: 048
  2. PALEXIA RETARD [Suspect]
     Indication: LIMB INJURY
     Route: 048
     Dates: start: 20130927, end: 20131122
  3. PALEXIA RETARD [Suspect]
     Indication: NEURALGIA
     Route: 048
  4. PALEXIA RETARD [Suspect]
     Indication: NEURALGIA
     Route: 048
     Dates: start: 20130927, end: 20131122
  5. COLCHICINE [Interacting]
     Indication: FAMILIAL MEDITERRANEAN FEVER
     Route: 065
  6. COLCHICINE [Interacting]
     Indication: FAMILIAL MEDITERRANEAN FEVER
     Route: 065
  7. VERSATIS [Suspect]
     Indication: NEURALGIA
     Route: 061
  8. VOLTAREN [Concomitant]
     Indication: PRODUCT USED FOR UNKNOWN INDICATION
     Route: 065
  9. AMITRIPTYLIN [Concomitant]
     Indication: PRODUCT USED FOR UNKNOWN INDICATION
     Route: 065
  10. NOVAMINSULFON [Concomitant]
     Indication: PRODUCT USED FOR UNKNOWN INDICATION
     Route: 065
  11. PANTOPRAZOLE [Concomitant]
     Indication: PRODUCT USED FOR UNKNOWN INDICATION
     Route: 065
  12. HYDROCHLOROTHIAZIDE [Concomitant]
     Indication: PRODUCT USED FOR UNKNOWN INDICATION
     Route: 065

REACTIONS (3)
  - Drug interaction [Recovered/Resolved]
  - Drug ineffective [Recovered/Resolved]
  - Familial mediterranean fever [Unknown]
